FAERS Safety Report 9245016 (Version 1)
Quarter: 2013Q1

REPORT INFORMATION
  Report Type: Spontaneous
  Country: US (occurrence: None)
  Receive Date: 20121130
  Receipt Date: 20121130
  Transmission Date: 20140127
  Serious: Yes (Other)
  Sender: FDA-Public Use
  Company Number: US201207008948

PATIENT
  Age: 54 Year
  Sex: Female

DRUGS (3)
  1. BYETTA [Suspect]
     Route: 058
  2. SULFONAMIDES, UREA DERIVATIVES [Concomitant]
  3. THIAZIDE DERIVATIVES [Concomitant]

REACTIONS (4)
  - Anaphylactic reaction [None]
  - Angioedema [None]
  - Urticaria [None]
  - Diabetes mellitus inadequate control [None]
